FAERS Safety Report 4741645-9 (Version None)
Quarter: 2005Q3

REPORT INFORMATION
  Report Type: 
  Country: None (occurrence: None)
  Receive Date: 20050801
  Receipt Date: 20050606
  Transmission Date: 20060218
  Serious: No
  Sender: FDA-Public Use
  Company Number: 2005PV000017

PATIENT
  Age: 65 Year
  Sex: Female
  Weight: 90.7194 kg

DRUGS (5)
  1. BYETTA [Suspect]
     Indication: DIABETES MELLITUS NON-INSULIN-DEPENDENT
     Dosage: 5 UG; BID; SC
     Route: 058
     Dates: start: 20050602
  2. ACTOS [Concomitant]
  3. METFORMIN [Concomitant]
  4. COREG [Concomitant]
  5. ALTACE [Concomitant]

REACTIONS (4)
  - MUSCLE SPASMS [None]
  - NAUSEA [None]
  - POLLAKIURIA [None]
  - RETCHING [None]
